FAERS Safety Report 5341233-X (Version None)
Quarter: 2007Q2

REPORT INFORMATION
  Report Type: 
  Country: None (occurrence: None)
  Receive Date: 20070405
  Receipt Date: 20070112
  Transmission Date: 20071010
  Serious: No
  Sender: FDA-Public Use
  Company Number: US200701002519

PATIENT
  Sex: Female

DRUGS (3)
  1. CYMBALTA [Suspect]
     Dates: start: 20061001, end: 20061001
  2. IBANDRONIC ACID (IBANDRONIC ACID) [Concomitant]
  3. PROPRANOLOL [Concomitant]

REACTIONS (2)
  - EYE IRRITATION [None]
  - PAIN IN JAW [None]
